FAERS Safety Report 6488150-X (Version None)
Quarter: 2009Q4

REPORT INFORMATION
  Report Type: 
  Country: None (occurrence: None)
  Receive Date: 20091210
  Receipt Date: 20091201
  Transmission Date: 20100525
  Serious: Yes (Hospitalization)
  Sender: FDA-Public Use
  Company Number: A0834031A

PATIENT
  Age: 25 Year
  Sex: Male

DRUGS (1)
  1. AVANDIA [Suspect]
     Indication: TYPE 2 DIABETES MELLITUS
     Dosage: 2MG TWICE PER DAY
     Route: 048
     Dates: start: 20050507, end: 20070201

REACTIONS (8)
  - AMNESIA [None]
  - CARDIAC DISORDER [None]
  - CARDIOMEGALY [None]
  - DEMENTIA [None]
  - DIABETES MELLITUS [None]
  - FOOT FRACTURE [None]
  - JOINT SWELLING [None]
  - WEIGHT DECREASED [None]
